FAERS Safety Report 10539854 (Version 1)
Quarter: 2014Q4

REPORT INFORMATION
  Report Type: Spontaneous
  Country: US (occurrence: US)
  Receive Date: 20141024
  Receipt Date: 20141024
  Transmission Date: 20150529
  Serious: No
  Sender: FDA-Public Use
  Company Number: US-BIOGENIDEC-2014BI098905

PATIENT
  Age: 46 Year
  Sex: Female

DRUGS (12)
  1. BACLOFEN. [Concomitant]
     Active Substance: BACLOFEN
  2. TECFIDERA [Suspect]
     Active Substance: DIMETHYL FUMARATE
     Indication: MULTIPLE SCLEROSIS
     Route: 048
     Dates: start: 20140813
  3. ACYCLOVIR. [Concomitant]
     Active Substance: ACYCLOVIR
  4. MEDROXYPROGESTEONE [Concomitant]
  5. FISH OIL [Concomitant]
     Active Substance: FISH OIL
  6. AMBIEN [Concomitant]
     Active Substance: ZOLPIDEM TARTRATE
  7. NORTRIPTYLINE HCL [Concomitant]
     Active Substance: NORTRIPTYLINE HYDROCHLORIDE
  8. AMANTADINE HCL [Concomitant]
     Active Substance: AMANTADINE HYDROCHLORIDE
  9. VITAMIN D [Concomitant]
     Active Substance: CHOLECALCIFEROL
  10. MULTIVITAMINS [Concomitant]
     Active Substance: VITAMINS
  11. VITAMIN B COMPLEX 100 [Concomitant]
  12. DITROPAN XL [Concomitant]
     Active Substance: OXYBUTYNIN CHLORIDE

REACTIONS (3)
  - Abdominal pain [Unknown]
  - Nausea [Unknown]
  - Fatigue [Unknown]
